FAERS Safety Report 7511243-2 (Version None)
Quarter: 2011Q2

REPORT INFORMATION
  Report Type: 
  Country: None (occurrence: None)
  Receive Date: 20110531
  Receipt Date: 20110525
  Transmission Date: 20111010
  Serious: Yes (Death, Hospitalization, Other)
  Sender: FDA-Public Use
  Company Number: PHEH2005US04882

PATIENT
  Sex: Male
  Weight: 96.1 kg

DRUGS (29)
  1. VASOTEC [Concomitant]
  2. HUMALOG [Concomitant]
  3. MONOPRIL [Concomitant]
     Dosage: 40 MG, QD
     Dates: start: 20000101
  4. METFFORMIN HYDROCHLORIDE [Concomitant]
     Dosage: 1000 MG, UNK
     Dates: start: 20020101
  5. ACETAMINOPHEN [Concomitant]
  6. TRAZODONE HCL [Concomitant]
     Indication: INSOMNIA
  7. DYNACIRC [Concomitant]
  8. LANTUS [Concomitant]
  9. LASIX [Concomitant]
  10. ZOMETA [Suspect]
     Indication: MULTIPLE MYELOMA
     Dosage: 4 MG Q21 DAYS
     Dates: start: 20030127, end: 20050107
  11. PRANDIN [Concomitant]
     Dosage: 2 MG, UNK
     Dates: start: 20010101
  12. OXYCONTIN [Concomitant]
  13. ALOCRIL [Concomitant]
     Dosage: 2 %, UNK
     Dates: start: 20020101
  14. PERCOCET [Concomitant]
     Dosage: 10/650 MG, UNK
     Dates: start: 20020101
  15. REGLAN [Concomitant]
  16. NORVASC [Concomitant]
     Dosage: 5 MG, QD
     Dates: start: 20000101
  17. ATIVAN [Concomitant]
  18. MOTRIN [Concomitant]
  19. TRIAMTERENE [Concomitant]
  20. AREDIA [Suspect]
  21. GLUCOPHAGE [Concomitant]
     Dosage: 1 G, BID
     Dates: start: 20000101
  22. GLUCOTROL XL [Concomitant]
     Dosage: 10 MG, UNK
     Dates: start: 20000101
  23. DILAUDID [Concomitant]
  24. OXYCODONE HCL [Concomitant]
  25. HYDROCHLOROTHIAZIDE [Concomitant]
  26. MAXZIDE [Concomitant]
     Dosage: 37.5/25 MG, QD
     Dates: start: 20010101
  27. DULCOLAX [Concomitant]
  28. ZANTAC [Concomitant]
  29. ENALAPRIL MALEATE [Concomitant]

REACTIONS (87)
  - DEATH [None]
  - BIOPSY [None]
  - OSTEOLYSIS [None]
  - COMPRESSION FRACTURE [None]
  - FAECALOMA [None]
  - SINUSITIS [None]
  - OSTEOARTHRITIS [None]
  - FATIGUE [None]
  - INFLAMMATION [None]
  - OSTEOMYELITIS [None]
  - GINGIVAL BLEEDING [None]
  - PAIN [None]
  - ABDOMINAL DISCOMFORT [None]
  - JOINT SPRAIN [None]
  - UPPER RESPIRATORY TRACT INFECTION [None]
  - HERPES ZOSTER [None]
  - URINARY HESITATION [None]
  - MICTURITION URGENCY [None]
  - INSOMNIA [None]
  - BLOOD CREATININE INCREASED [None]
  - HYPERPLASIA [None]
  - MONOCLONAL IMMUNOGLOBULIN PRESENT [None]
  - CEREBELLAR ATROPHY [None]
  - THROAT TIGHTNESS [None]
  - SYNCOPE [None]
  - EATING DISORDER [None]
  - BONE PAIN [None]
  - SKIN LESION [None]
  - BONE MARROW DISORDER [None]
  - GAIT DISTURBANCE [None]
  - BLOOD UREA INCREASED [None]
  - CYSTITIS HAEMORRHAGIC [None]
  - PURULENT DISCHARGE [None]
  - HYPERVISCOSITY SYNDROME [None]
  - WEIGHT DECREASED [None]
  - SPINAL COLUMN STENOSIS [None]
  - ASTHENIA [None]
  - SPINAL OSTEOARTHRITIS [None]
  - CERVICAL CORD COMPRESSION [None]
  - MUSCULOSKELETAL DISCOMFORT [None]
  - DYSPHAGIA [None]
  - MENINGEAL NEOPLASM [None]
  - BACK PAIN [None]
  - PROSTATIC SPECIFIC ANTIGEN INCREASED [None]
  - CONSTIPATION [None]
  - CACHEXIA [None]
  - DECUBITUS ULCER [None]
  - DISCOMFORT [None]
  - ARTHRALGIA [None]
  - KYPHOSIS [None]
  - MOBILITY DECREASED [None]
  - PLEURAL EFFUSION [None]
  - EXCESSIVE GRANULATION TISSUE [None]
  - TOOTH FRACTURE [None]
  - THROMBOCYTOPENIA [None]
  - RENAL FAILURE ACUTE [None]
  - ACTINOMYCOSIS [None]
  - FALL [None]
  - DECREASED APPETITE [None]
  - THYROID CYST [None]
  - PRURITUS [None]
  - TOOTH DISORDER [None]
  - NEOPLASM MALIGNANT [None]
  - SWELLING [None]
  - PANCYTOPENIA [None]
  - RADICULOPATHY [None]
  - MUSCULAR WEAKNESS [None]
  - CONTUSION [None]
  - NECK PAIN [None]
  - PROSTATISM [None]
  - ABDOMINAL PAIN [None]
  - OSTEONECROSIS OF JAW [None]
  - TOOTHACHE [None]
  - METABOLIC ACIDOSIS [None]
  - EPISTAXIS [None]
  - GASTROOESOPHAGEAL REFLUX DISEASE [None]
  - ANAEMIA OF MALIGNANT DISEASE [None]
  - HYPOACUSIS [None]
  - TINEA INFECTION [None]
  - MUSCULOSKELETAL CHEST PAIN [None]
  - ROAD TRAFFIC ACCIDENT [None]
  - COUGH [None]
  - DYSPNOEA [None]
  - MALAISE [None]
  - HAEMATURIA [None]
  - DYSURIA [None]
  - PNEUMONIA [None]
